FAERS Safety Report 19300608 (Version 1)
Quarter: 2021Q2

REPORT INFORMATION
  Report Type: Spontaneous
  Country: IT (occurrence: IT)
  Receive Date: 20210525
  Receipt Date: 20210525
  Transmission Date: 20210717
  Serious: Yes (Hospitalization)
  Sender: FDA-Public Use
  Company Number: IT-ELI_LILLY_AND_COMPANY-IT202105005772

PATIENT
  Age: 45 Year
  Sex: Male

DRUGS (5)
  1. BUPRENORPHINE. [Concomitant]
     Active Substance: BUPRENORPHINE
     Dosage: 5 UG, UNKNOWN
     Route: 062
  2. HUMAN INSULIN (RDNA ORIGIN) [Suspect]
     Active Substance: INSULIN HUMAN
     Indication: PRODUCT USED FOR UNKNOWN INDICATION
     Dosage: 27 INTERNATIONAL UNIT, DAILY
     Route: 058
  3. PREGABALIN. [Concomitant]
     Active Substance: PREGABALIN
     Dosage: 450 MG, DAILY
     Route: 048
  4. TOUJEO [Suspect]
     Active Substance: INSULIN GLARGINE
     Indication: DIABETES MELLITUS
     Dosage: 30 INTERNATIONAL UNIT, DAILY (300 U/ML)
     Route: 058
  5. VENTOLIN [Concomitant]
     Active Substance: ALBUTEROL SULFATE
     Indication: ASTHMA
     Dosage: 100 UG, PRN
     Route: 055

REACTIONS (3)
  - Paraesthesia [Recovering/Resolving]
  - Hypoglycaemia [Recovering/Resolving]
  - Feeling hot [Recovering/Resolving]

NARRATIVE: CASE EVENT DATE: 20210426
